FAERS Safety Report 4273480-2 (Version None)
Quarter: 2004Q1

REPORT INFORMATION
  Report Type: 
  Country: None (occurrence: None)
  Receive Date: 20040114
  Receipt Date: 20031229
  Transmission Date: 20041129
  Serious: Yes (Other)
  Sender: FDA-Public Use
  Company Number: 2003-DE-06493GD (0)

PATIENT
  Age: 52 Year
  Sex: Male

DRUGS (2)
  1. CYCLOPHOSPHAMIDE [Suspect]
     Indication: APLASIA PURE RED CELL
     Dosage: 100 MG, PO
     Route: 048
  2. PREDNISONE [Suspect]
     Indication: APLASIA PURE RED CELL
     Dosage: 60 MG

REACTIONS (1)
  - DRUG INEFFECTIVE [None]
